FAERS Safety Report 11966370 (Version 1)
Quarter: 2016Q1

REPORT INFORMATION
  Report Type: Spontaneous
  Country: US (occurrence: US)
  Receive Date: 20160127
  Receipt Date: 20160127
  Transmission Date: 20160526
  Serious: No
  Sender: FDA-Public Use
  Company Number: US-ALLERGAN-1518817US

PATIENT
  Sex: Female

DRUGS (2)
  1. BLEPHAMIDE [Suspect]
     Active Substance: PREDNISOLONE ACETATE\SULFACETAMIDE SODIUM
     Indication: SEASONAL ALLERGY
     Dosage: UNK, TID
     Route: 047
     Dates: start: 201410
  2. CLARITIN ALLERGIC [Concomitant]
     Indication: SEASONAL ALLERGY

REACTIONS (6)
  - Eye swelling [Recovered/Resolved]
  - Eye pruritus [Recovered/Resolved]
  - Eye pain [Recovered/Resolved]
  - Eye irritation [Recovered/Resolved]
  - Drug hypersensitivity [Not Recovered/Not Resolved]
  - Ocular discomfort [Recovered/Resolved]
